FAERS Safety Report 25429126 (Version 4)
Quarter: 2025Q3

REPORT INFORMATION
  Report Type: Report from Study
  Country: EU (occurrence: EU)
  Receive Date: 20250612
  Receipt Date: 20250722
  Transmission Date: 20251021
  Serious: No
  Sender: PFIZER
  Company Number: EU-PFIZER INC-PV202500064265

PATIENT

DRUGS (1)
  1. SOMATROGON [Suspect]
     Active Substance: SOMATROGON
     Dosage: UNK, WEEKLY

REACTIONS (3)
  - Drug intolerance [Unknown]
  - Treatment noncompliance [Unknown]
  - Injection site pain [Unknown]
